FAERS Safety Report 5540652-6 (Version None)
Quarter: 2007Q4

REPORT INFORMATION
  Report Type: 
  Country: None (occurrence: None)
  Receive Date: 20071129
  Receipt Date: 20070920
  Transmission Date: 20080405
  Serious: Yes (Other)
  Sender: FDA-Public Use
  Company Number: US200709004523

PATIENT
  Age: 35 Year
  Sex: Male
  Weight: 136.1 kg

DRUGS (3)
  1. ZYPREXA [Suspect]
     Indication: SCHIZOAFFECTIVE DISORDER
     Dosage: 20 MG, DAILY (1/D),; 10 MG,; 5 MG,
     Dates: start: 19970101
  2. RISPERDAL [Concomitant]
  3. LEXAPRO [Concomitant]

REACTIONS (3)
  - GLUCOSE TOLERANCE IMPAIRED [None]
  - HYPERGLYCAEMIA [None]
  - WEIGHT INCREASED [None]
